FAERS Safety Report 9263102 (Version 6)
Quarter: 2013Q2

REPORT INFORMATION
  Report Type: Report from Study
  Country: JP (occurrence: JP)
  Receive Date: 20130430
  Receipt Date: 20130529
  Transmission Date: 20140414
  Serious: Yes (Life-Threatening, Hospitalization)
  Sender: FDA-Public Use
  Company Number: JP-ROCHE-1216840

PATIENT
  Age: 69 Year
  Sex: Male
  Weight: 64.2 kg

DRUGS (22)
  1. BEVACIZUMAB [Suspect]
     Indication: NON-SMALL CELL LUNG CANCER
     Dosage: DATE OF LAST DOSE PRIRO TO SAE 28/MAR/2013
     Route: 042
     Dates: start: 20130207, end: 20130418
  2. ERLOTINIB [Suspect]
     Indication: NON-SMALL CELL LUNG CANCER
     Dosage: DATE OF LAST DOSE PRIOR TO SAE 18/APR/2013
     Route: 048
     Dates: start: 20130308, end: 20130418
  3. LANSOPRAZOLE [Concomitant]
     Route: 065
     Dates: start: 20120622, end: 20130418
  4. LANSOPRAZOLE [Concomitant]
     Route: 065
     Dates: start: 20130424
  5. PREDNISOLONE [Concomitant]
     Route: 065
     Dates: start: 20130223, end: 20130408
  6. PREDNISOLONE [Concomitant]
     Route: 065
     Dates: start: 20130423
  7. PREDNISOLONE [Concomitant]
     Route: 065
     Dates: start: 20130509
  8. AMLODIPINE BESILATE [Concomitant]
     Dosage: DAILY
     Route: 065
     Dates: start: 20130222, end: 20130418
  9. AMLODIPINE BESILATE [Concomitant]
     Dosage: DAILY
     Route: 065
     Dates: start: 20130424, end: 20130507
  10. AMLODIPINE BESILATE [Concomitant]
     Route: 065
     Dates: start: 20130516
  11. LOXOPROFEN SODIUM [Concomitant]
     Dosage: DAILY
     Route: 065
     Dates: start: 20130306, end: 20130418
  12. LOXOPROFEN SODIUM [Concomitant]
     Dosage: DAILY
     Route: 065
     Dates: start: 20130421, end: 20130421
  13. LOXOPROFEN SODIUM [Concomitant]
     Dosage: DAILY
     Route: 065
     Dates: start: 20130424
  14. LOXOPROFEN SODIUM [Concomitant]
     Route: 065
     Dates: start: 20130422, end: 20130507
  15. VALSARTAN [Concomitant]
     Dosage: DAILY
     Route: 065
     Dates: start: 20130306, end: 20130418
  16. REBAMIPIDE [Concomitant]
     Route: 065
     Dates: start: 20130306, end: 20130418
  17. SULFAMETHOXAZOLE/TRIMETHOPRIM [Concomitant]
     Dosage: DAILY
     Route: 065
     Dates: start: 20130315, end: 20130418
  18. CEFCAPENE PIVOXIL HYDROCHLORIDE [Concomitant]
     Dosage: DAILY
     Route: 065
     Dates: start: 20130321, end: 20130418
  19. BIOFERMIN R [Concomitant]
     Route: 065
     Dates: start: 20130321, end: 20130418
  20. HYDROCORTISONE BUTYRATE [Concomitant]
     Dosage: DAILY
     Route: 065
     Dates: start: 20130315, end: 20130418
  21. BECLOMETASONE DIPROPIONATE [Concomitant]
     Dosage: DAILY
     Route: 065
     Dates: start: 20130315, end: 20130418
  22. RINDERON-VG [Concomitant]
     Dosage: DAILY
     Route: 065
     Dates: start: 20130328, end: 20130418

REACTIONS (2)
  - Sepsis [Recovered/Resolved]
  - Pneumatosis intestinalis [Recovered/Resolved]
